FAERS Safety Report 7826009-3 (Version None)
Quarter: 2011Q4

REPORT INFORMATION
  Report Type: 
  Country: None (occurrence: None)
  Receive Date: 20111019
  Receipt Date: 20111018
  Transmission Date: 20120403
  Serious: Yes (Hospitalization)
  Sender: FDA-Public Use
  Company Number: JP-ABBOTT-09P-087-0575055-00

PATIENT
  Sex: Female
  Weight: 57.3 kg

DRUGS (6)
  1. ALFACALCIDOL [Concomitant]
     Indication: PRODUCT USED FOR UNKNOWN INDICATION
  2. HUMIRA [Suspect]
     Route: 058
     Dates: start: 20091013
  3. ALENDRONATE SODIUM [Concomitant]
     Indication: PRODUCT USED FOR UNKNOWN INDICATION
  4. HUMIRA [Suspect]
     Indication: RHEUMATOID ARTHRITIS
     Route: 058
     Dates: start: 20080930, end: 20090108
  5. CELECOXIB [Concomitant]
     Indication: RHEUMATOID ARTHRITIS
  6. METHYLPREDNISOLONE [Concomitant]
     Indication: RHEUMATOID ARTHRITIS
     Route: 048
     Dates: start: 20060921

REACTIONS (3)
  - ARTHRITIS [None]
  - TUBERCULOUS PLEURISY [None]
  - ARTHRALGIA [None]
